FAERS Safety Report 6440033-7 (Version None)
Quarter: 2009Q4

REPORT INFORMATION
  Report Type: 
  Country: None (occurrence: None)
  Receive Date: 20091113
  Receipt Date: 20091105
  Transmission Date: 20100525
  Serious: Yes (Hospitalization)
  Sender: FDA-Public Use
  Company Number: FR-ABBOTT-09P-056-0607003-00

PATIENT
  Sex: Female
  Weight: 2.3 kg

DRUGS (3)
  1. DEPAKENE [Suspect]
     Indication: DRUG EXPOSURE DURING PREGNANCY
     Route: 064
  2. TRILEPTAL [Suspect]
     Indication: DRUG EXPOSURE DURING PREGNANCY
     Route: 064
  3. PAROXETINE HCL [Suspect]
     Indication: DRUG EXPOSURE DURING PREGNANCY
     Route: 064

REACTIONS (14)
  - AGITATION NEONATAL [None]
  - AMMONIA INCREASED [None]
  - BLOOD LACTIC ACID INCREASED [None]
  - COAGULATION DISORDER NEONATAL [None]
  - CSF PROTEIN INCREASED [None]
  - DRUG EXPOSURE DURING PREGNANCY [None]
  - GAZE PALSY [None]
  - HYPERTONIA NEONATAL [None]
  - HYPOTONIA NEONATAL [None]
  - INFANTILE APNOEIC ATTACK [None]
  - METABOLIC DISORDER [None]
  - OXYGEN SATURATION DECREASED [None]
  - SMALL FOR DATES BABY [None]
  - TREMOR [None]
